FAERS Safety Report 12462602 (Version 1)
Quarter: 2016Q2

REPORT INFORMATION
  Report Type: Spontaneous
  Country: HR (occurrence: HR)
  Receive Date: 20160614
  Receipt Date: 20160614
  Transmission Date: 20160815
  Serious: Yes (Other)
  Sender: FDA-Public Use
  Company Number: HR-ROCHE-1775041

PATIENT
  Sex: Female
  Weight: 91 kg

DRUGS (4)
  1. ARCOXIA [Concomitant]
     Active Substance: ETORICOXIB
     Route: 048
  2. DECORTIN [Concomitant]
     Active Substance: PREDNISONE
     Indication: RHEUMATOID ARTHRITIS
     Route: 048
  3. ROACTEMRA [Suspect]
     Active Substance: TOCILIZUMAB
     Indication: RHEUMATOID ARTHRITIS
     Dosage: INFUSION AMPOULES, VIALS/BOTTLES
     Route: 042
     Dates: start: 20160318
  4. RESOCHIN [Concomitant]
     Active Substance: NIFEDIPINE
     Indication: RHEUMATOID ARTHRITIS
     Route: 048

REACTIONS (4)
  - Neutrophilic dermatosis [Recovered/Resolved]
  - Staphylococcus test positive [Recovered/Resolved]
  - Rash maculo-papular [Recovered/Resolved]
  - Dermatitis [Recovered/Resolved]
